FAERS Safety Report 13845266 (Version 1)
Quarter: 2017Q3

REPORT INFORMATION
  Report Type: Spontaneous
  Country: GR (occurrence: GR)
  Receive Date: 20170808
  Receipt Date: 20170808
  Transmission Date: 20171127
  Serious: Yes (Other)
  Sender: FDA-Public Use
  Company Number: GR-PFIZER INC-2017337156

PATIENT
  Sex: Female

DRUGS (2)
  1. KLARICID [Suspect]
     Active Substance: CLARITHROMYCIN
     Dosage: UNK
  2. DALACIN C [Suspect]
     Active Substance: CLINDAMYCIN PHOSPHATE
     Indication: PULPITIS DENTAL
     Dosage: UNK

REACTIONS (6)
  - Prurigo [Unknown]
  - Diarrhoea haemorrhagic [Unknown]
  - Dermatitis [Unknown]
  - Dermatitis atopic [Unknown]
  - Pruritus [Unknown]
  - Alopecia [Unknown]
